FAERS Safety Report 12464427 (Version 1)
Quarter: 2016Q2

REPORT INFORMATION
  Report Type: Spontaneous
  Country: US (occurrence: None)
  Receive Date: 20160613
  Receipt Date: 20160613
  Transmission Date: 20160815
  Serious: Yes (Death)
  Sender: FDA-Public Use
  Company Number: None

PATIENT
  Age: 60 Year
  Sex: Male
  Weight: 100 kg

DRUGS (2)
  1. SOFOSBUVIR [Suspect]
     Active Substance: SOFOSBUVIR
     Route: 048
     Dates: start: 20150826, end: 20151117
  2. RIBAVIRIN. [Suspect]
     Active Substance: RIBAVIRIN
     Indication: HEPATITIS C
     Route: 048
     Dates: start: 20150826, end: 20151117

REACTIONS (4)
  - Urinary tract infection [None]
  - Pain in extremity [None]
  - Muscular weakness [None]
  - Asthenia [None]

NARRATIVE: CASE EVENT DATE: 20151209
